FAERS Safety Report 5519568-7 (Version None)
Quarter: 2007Q4

REPORT INFORMATION
  Report Type: 
  Country: None (occurrence: None)
  Receive Date: 20071116
  Receipt Date: 20071108
  Transmission Date: 20080405
  Serious: Yes (Other)
  Sender: FDA-Public Use
  Company Number: US-ROCHE-531162

PATIENT
  Age: 18 Year
  Sex: Female

DRUGS (2)
  1. ACCUTANE [Suspect]
     Indication: DRUG USE FOR UNKNOWN INDICATION
     Route: 065
     Dates: start: 20070910, end: 20071108
  2. ORAL CONTRACEPTION [Concomitant]
     Indication: CONTRACEPTION

REACTIONS (4)
  - DRUG EXPOSURE DURING PREGNANCY [None]
  - NO ADVERSE REACTION [None]
  - PREGNANCY [None]
  - PREGNANCY ON CONTRACEPTIVE [None]
